FAERS Safety Report 12740642 (Version 2)
Quarter: 2016Q4

REPORT INFORMATION
  Report Type: Spontaneous
  Country: JP (occurrence: JP)
  Receive Date: 20160914
  Receipt Date: 20161101
  Transmission Date: 20170207
  Serious: Yes (Hospitalization)
  Sender: FDA-Public Use
  Company Number: JP-UCBSA-2016032003

PATIENT
  Age: 15 Year
  Sex: Female

DRUGS (12)
  1. E KEPPRA [Suspect]
     Active Substance: LEVETIRACETAM
     Indication: EPILEPSY
     Dosage: 160 MG, DAILY
     Dates: start: 20151109, end: 20151209
  2. E KEPPRA [Suspect]
     Active Substance: LEVETIRACETAM
     Dosage: 320 MG, DAILY
     Dates: start: 20160203, end: 20160307
  3. E KEPPRA [Suspect]
     Active Substance: LEVETIRACETAM
     Dosage: 700 MG, DAILY
     Dates: start: 20160530, end: 20160809
  4. RACOL [Concomitant]
     Active Substance: AMINO ACIDS\DEXTROSE\ELECTROLYTES NOS
     Indication: PRODUCT USED FOR UNKNOWN INDICATION
     Dosage: DOSAGE FOR: POR
  5. TEGRETOL [Concomitant]
     Active Substance: CARBAMAZEPINE
     Indication: PRODUCT USED FOR UNKNOWN INDICATION
     Dosage: 360 MG DAILY
  6. E KEPPRA [Suspect]
     Active Substance: LEVETIRACETAM
     Dosage: 240 MG, DAILY
     Dates: start: 20151210, end: 20160202
  7. E KEPPRA [Suspect]
     Active Substance: LEVETIRACETAM
     Dosage: 500 MG, DAILY
     Dates: start: 20160421, end: 20160508
  8. E KEPPRA [Suspect]
     Active Substance: LEVETIRACETAM
     Dosage: 600 MG, DAILY
     Dates: start: 20160509, end: 20160529
  9. RIVOTRIL [Concomitant]
     Active Substance: CLONAZEPAM
     Indication: PRODUCT USED FOR UNKNOWN INDICATION
     Dosage: 0.6 MG DAILY
  10. PHENOBAL [Concomitant]
     Active Substance: PHENOBARBITAL
     Indication: PRODUCT USED FOR UNKNOWN INDICATION
     Dosage: 75 MG DAILY
  11. E KEPPRA [Suspect]
     Active Substance: LEVETIRACETAM
     Dosage: 400 MG, DAILY
     Dates: start: 20160308, end: 20160420
  12. SODIUM VALPROATE [Concomitant]
     Active Substance: VALPROATE SODIUM
     Indication: PRODUCT USED FOR UNKNOWN INDICATION
     Dosage: 500 MG DAILY

REACTIONS (1)
  - Duodenal stenosis [Recovering/Resolving]

NARRATIVE: CASE EVENT DATE: 20160704
